FAERS Safety Report 17933964 (Version 1)
Quarter: 2020Q2

REPORT INFORMATION
  Report Type: Spontaneous
  Country: FR (occurrence: FR)
  Receive Date: 20200624
  Receipt Date: 20200624
  Transmission Date: 20200714
  Serious: Yes (Other)
  Sender: FDA-Public Use
  Company Number: NVSC2020FR084849

PATIENT
  Age: 90 Year
  Sex: Male

DRUGS (11)
  1. CYCLOPHOSPHAMIDE. [Suspect]
     Active Substance: CYCLOPHOSPHAMIDE
     Indication: WALDENSTROM^S MACROGLOBULINAEMIA
     Dosage: 750 MG/M2, QD (4 CYCLES)
     Route: 065
  2. METHYLPREDNISOLONE. [Suspect]
     Active Substance: METHYLPREDNISOLONE
     Indication: VON WILLEBRAND^S DISEASE
     Dosage: 60 MG/M2, QD
     Route: 048
  3. BORTEZOMIB. [Suspect]
     Active Substance: BORTEZOMIB
     Indication: WALDENSTROM^S MACROGLOBULINAEMIA
     Dosage: 1.3 MG/M2, QW (FOR 4 WEEKS)
     Route: 042
  4. CYCLOPHOSPHAMIDE. [Suspect]
     Active Substance: CYCLOPHOSPHAMIDE
     Indication: VON WILLEBRAND^S DISEASE
  5. PREDNISONE. [Suspect]
     Active Substance: PREDNISONE
     Indication: WALDENSTROM^S MACROGLOBULINAEMIA
     Dosage: UNK
     Route: 065
  6. VINCRISTINE [Suspect]
     Active Substance: VINCRISTINE
     Indication: WALDENSTROM^S MACROGLOBULINAEMIA
     Dosage: 1.4 MG/M2, QD (4 CYCLES)
     Route: 065
  7. MELPHALAN. [Suspect]
     Active Substance: MELPHALAN
     Indication: WALDENSTROM^S MACROGLOBULINAEMIA
     Dosage: 8 MG/M2, QD (4 DAYS)
     Route: 048
  8. RITUXIMAB. [Suspect]
     Active Substance: RITUXIMAB
     Indication: VON WILLEBRAND^S DISEASE
  9. METHYLPREDNISOLONE. [Suspect]
     Active Substance: METHYLPREDNISOLONE
     Indication: WALDENSTROM^S MACROGLOBULINAEMIA
     Dosage: 60 MG/M2, QD (4 CYCLES)
     Route: 065
  10. VINCRISTINE [Suspect]
     Active Substance: VINCRISTINE
     Indication: VON WILLEBRAND^S DISEASE
  11. RITUXIMAB. [Suspect]
     Active Substance: RITUXIMAB
     Indication: WALDENSTROM^S MACROGLOBULINAEMIA
     Dosage: 375 MG/M2, QD (4 CYCLES)
     Route: 065

REACTIONS (3)
  - Therapeutic response decreased [Unknown]
  - Product use in unapproved indication [Unknown]
  - Drug ineffective [Unknown]
